FAERS Safety Report 24638134 (Version 1)
Quarter: 2024Q4

REPORT INFORMATION
  Report Type: Spontaneous
  Country: US (occurrence: None)
  Receive Date: 20241116
  Receipt Date: 20241116
  Transmission Date: 20250114
  Serious: Yes (Hospitalization)
  Sender: Public
  Company Number: None

PATIENT
  Sex: Female

DRUGS (1)
  1. COSMETICS [Suspect]
     Active Substance: COSMETICS
     Dates: start: 20240928, end: 20240930

REACTIONS (7)
  - Erythema [None]
  - Rash [None]
  - Peripheral swelling [None]
  - Blood pressure increased [None]
  - Liver disorder [None]
  - Skin exfoliation [None]
  - Recalled product administered [None]

NARRATIVE: CASE EVENT DATE: 20240928
